FAERS Safety Report 8115911-3 (Version None)
Quarter: 2012Q1

REPORT INFORMATION
  Report Type: 
  Country: None (occurrence: None)
  Receive Date: 20120206
  Receipt Date: 20120123
  Transmission Date: 20120608
  Serious: Yes (Other)
  Sender: FDA-Public Use
  Company Number: GB-ROCHE-1034232

PATIENT

DRUGS (2)
  1. XELODA [Suspect]
     Indication: ANAL CANCER
     Route: 048
  2. MITOMYCIN [Suspect]
     Indication: ANAL CANCER
     Dosage: ON DAY 1
     Route: 040

REACTIONS (11)
  - PROCTALGIA [None]
  - PROCTITIS [None]
  - LEUKOPENIA [None]
  - SKIN TOXICITY [None]
  - ANAL FISSURE [None]
  - ANAEMIA [None]
  - NEPHROPATHY TOXIC [None]
  - DIARRHOEA [None]
  - NAUSEA [None]
  - NEUTROPENIA [None]
  - THROMBOCYTOPENIA [None]
